FAERS Safety Report 8986265 (Version 1)
Quarter: 2012Q4

REPORT INFORMATION
  Report Type: Spontaneous
  Country: US (occurrence: None)
  Receive Date: 20121101
  Receipt Date: 20121101
  Transmission Date: 20130627
  Serious: Yes (Hospitalization)
  Sender: FDA-Public Use
  Company Number: US-ACCORD-015032

PATIENT
  Age: 54 Year
  Sex: Female
  Weight: 48 kg

DRUGS (13)
  1. DOCETAXEL [Suspect]
     Indication: METASTATIC BREAST CANCER
     Dosage: 75.00-mg/m2-1.0total (not otherwise specified)
     Route: 042
     Dates: start: 20120901
  2. CARDIZEM(CARDIZEM) [Concomitant]
  3. DEXAMETHASONE(DEXAMETHASONE) [Concomitant]
  4. ALEVE(ALEVE) [Concomitant]
  5. INVESTIGATIONAL DRUG(INVESTIGATIONAL DRUG) [Concomitant]
  6. PROCRIT(PROCRIT) [Concomitant]
  7. BENADRYL(BENADRYL) [Concomitant]
  8. DECADRON(DECADRON) [Concomitant]
  9. LEUKINE(LEUKINE) [Concomitant]
  10. IRON(IRON) [Concomitant]
  11. MULTIVITAMIN(MULTIVITAMIN) [Concomitant]
  12. POTASSIUM CHLORIDE(POTASSIUM CHLORIDE) [Concomitant]
  13. ALOXI(ALOXI) [Concomitant]

REACTIONS (5)
  - Neutropenia [None]
  - Cellulitis [None]
  - Arthralgia [None]
  - Wound infection [None]
  - Arthritis infective [None]
